FAERS Safety Report 10234054 (Version 1)
Quarter: 2014Q2

REPORT INFORMATION
  Report Type: Spontaneous
  Country: US (occurrence: US)
  Receive Date: 20140612
  Receipt Date: 20140612
  Transmission Date: 20141212
  Serious: Yes (Other)
  Sender: FDA-Public Use
  Company Number: US-TEVA-487528USA

PATIENT
  Sex: Male

DRUGS (1)
  1. CARVEDILOL [Suspect]

REACTIONS (5)
  - Heart rate decreased [Unknown]
  - Heart rate increased [Unknown]
  - Sick sinus syndrome [Unknown]
  - Heart rate abnormal [Unknown]
  - Feeling abnormal [Unknown]
